FAERS Safety Report 8549432-0 (Version None)
Quarter: 2012Q3

REPORT INFORMATION
  Report Type: 
  Country: None (occurrence: None)
  Receive Date: 20120730
  Receipt Date: 20120720
  Transmission Date: 20120928
  Serious: Yes (Life-Threatening, Hospitalization, Disabling)
  Sender: FDA-Public Use
  Company Number: DK-009507513-1207DNK010946

PATIENT

DRUGS (6)
  1. METFORMIN ACTAVIS [Concomitant]
     Indication: DIABETES MELLITUS
     Dates: end: 20120525
  2. SIMVASTATIN [Concomitant]
     Indication: CARDIAC DISORDER
  3. LISINOPRIL RATIOPHARM [Concomitant]
     Indication: HYPERTENSION
     Dates: end: 20120525
  4. JANUVIA [Suspect]
     Indication: DIABETES MELLITUS
     Dosage: STYRKE: 100 MG
     Route: 048
     Dates: start: 20120522, end: 20120619
  5. ASPIRIN [Concomitant]
     Indication: THROMBOSIS PROPHYLAXIS
  6. OMEPRAZOLE [Concomitant]

REACTIONS (1)
  - TUBULOINTERSTITIAL NEPHRITIS [None]
